FAERS Safety Report 4561595-0 (Version None)
Quarter: 2005Q1

REPORT INFORMATION
  Report Type: 
  Country: None (occurrence: None)
  Receive Date: 20050126
  Receipt Date: 20040924
  Transmission Date: 20050727
  Serious: Yes (Other)
  Sender: FDA-Public Use
  Company Number: US-GLAXOSMITHKLINE-A0527550A

PATIENT
  Age: 66 Year
  Sex: Female
  Weight: 62.3 kg

DRUGS (1)
  1. WELLBUTRIN XL [Suspect]
     Indication: HOT FLUSH
     Dosage: 300MG AT NIGHT
     Route: 048
     Dates: start: 20040922

REACTIONS (5)
  - INSOMNIA [None]
  - OEDEMA PERIPHERAL [None]
  - PALMAR ERYTHEMA [None]
  - PRURITUS [None]
  - TREMOR [None]
